FAERS Safety Report 10459824 (Version 1)
Quarter: 2014Q3

REPORT INFORMATION
  Report Type: Spontaneous
  Country: US (occurrence: US)
  Receive Date: 20140917
  Receipt Date: 20140917
  Transmission Date: 20150326
  Serious: No
  Sender: FDA-Public Use
  Company Number: US-009507513-1409USA005075

PATIENT
  Age: 57 Year
  Sex: Female

DRUGS (1)
  1. OXYTROL FOR WOMEN [Suspect]
     Active Substance: OXYBUTYNIN
     Indication: HYPERTONIC BLADDER
     Dosage: 1 DF, Q4D
     Route: 062

REACTIONS (7)
  - Application site erythema [Unknown]
  - Product quality issue [Unknown]
  - Application site pain [Unknown]
  - Drug ineffective [Unknown]
  - Dermatitis contact [Unknown]
  - Application site irritation [Unknown]
  - Application site pruritus [Unknown]
